FAERS Safety Report 15487212 (Version 1)
Quarter: 2018Q4

REPORT INFORMATION
  Report Type: Spontaneous
  Country: US (occurrence: US)
  Receive Date: 20181010
  Receipt Date: 20181010
  Transmission Date: 20190205
  Serious: Yes (Death, Life-Threatening, Hospitalization, Disabling)
  Sender: FDA-Public Use
  Company Number: None

PATIENT
  Age: 70 Year
  Sex: Female
  Weight: 60.75 kg

DRUGS (3)
  1. LIPITOR [Concomitant]
     Active Substance: ATORVASTATIN CALCIUM
  2. RITUXAN [Suspect]
     Active Substance: RITUXIMAB
     Indication: RHEUMATOID ARTHRITIS
     Dosage: OTHER FREQUENCY:6 MOS
     Route: 042
     Dates: end: 20180719
  3. METHOTREXATE. [Suspect]
     Active Substance: METHOTREXATE
     Indication: RHEUMATOID ARTHRITIS
     Dosage: OTHER FREQUENCY:6 MOS
     Route: 042
     Dates: end: 20180719

REACTIONS (14)
  - Disease recurrence [None]
  - White blood cell count decreased [None]
  - Cytokine release syndrome [None]
  - Neutropenia [None]
  - Toxoplasmosis [None]
  - Acute respiratory distress syndrome [None]
  - Product complaint [None]
  - Infusion related reaction [None]
  - Respiratory failure [None]
  - Systemic inflammatory response syndrome [None]
  - Pneumonia [None]
  - Toxicity to various agents [None]
  - Breast cancer metastatic [None]
  - Metastases to central nervous system [None]

NARRATIVE: CASE EVENT DATE: 20180802
